FAERS Safety Report 8297640-9 (Version None)
Quarter: 2012Q2

REPORT INFORMATION
  Report Type: 
  Country: None (occurrence: None)
  Receive Date: 20120419
  Receipt Date: 20120417
  Transmission Date: 20120825
  Serious: Yes (Hospitalization)
  Sender: FDA-Public Use
  Company Number: JP-PFIZER INC-2012089935

PATIENT
  Age: 38 Year
  Sex: Female

DRUGS (9)
  1. SENIRAN [Concomitant]
     Dosage: 15 MG DAILY
     Route: 048
  2. LULLAN [Concomitant]
     Dosage: 4 MG DAILY
     Route: 048
  3. U-PAN [Concomitant]
     Dosage: 2 MG DAILY
     Route: 048
  4. MAGMITT [Concomitant]
     Dosage: 990 MG DAILY
     Route: 048
  5. VARENICLINE TARTRATE [Suspect]
     Indication: SMOKING CESSATION THERAPY
     Dosage: 1 MG, 2X/DAY (IN THE MORNING AND EVENING)
     Route: 048
     Dates: start: 20120401
  6. FORSENID [Concomitant]
     Dosage: 12 MG DAILY
     Route: 048
  7. DOGMATYL [Concomitant]
     Dosage: 100 MG DAILY
     Route: 048
  8. REFLEX [Concomitant]
     Dosage: 15 MG, DAILY
     Route: 048
  9. OMEPRAZOLE [Concomitant]
     Dosage: 10 MG DAILY
     Route: 048

REACTIONS (1)
  - SCHIZOPHRENIA [None]
